FAERS Safety Report 7236466-1 (Version None)
Quarter: 2011Q1

REPORT INFORMATION
  Report Type: 
  Country: None (occurrence: None)
  Receive Date: 20110111
  Receipt Date: 20101228
  Transmission Date: 20110831
  Serious: Yes (Other)
  Sender: FDA-Public Use
  Company Number: FKO201000618

PATIENT
  Age: 24 Year
  Sex: Female

DRUGS (1)
  1. METHOTREXATE (MANUFACTURER UNKNOWN) (METHOTREXATE) (METHOTREXATE) [Suspect]
     Indication: B-CELL LYMPHOMA
     Dosage: 5.7143 MG (20 MG, FOR 6 WEEKS) INTRATHECAL
     Route: 037

REACTIONS (7)
  - ANAEMIA MEGALOBLASTIC [None]
  - ALOPECIA [None]
  - FATIGUE [None]
  - PLATELET COUNT DECREASED [None]
  - WHITE BLOOD CELL COUNT DECREASED [None]
  - NEUTROPHIL COUNT DECREASED [None]
  - MARROW HYPERPLASIA [None]
